FAERS Safety Report 5507446-9 (Version None)
Quarter: 2007Q4

REPORT INFORMATION
  Report Type: 
  Country: None (occurrence: None)
  Receive Date: 20071106
  Receipt Date: 20071102
  Transmission Date: 20080405
  Serious: Yes (Hospitalization)
  Sender: FDA-Public Use
  Company Number: US-ELI_LILLY_AND_COMPANY-US200711000638

PATIENT
  Sex: Female

DRUGS (2)
  1. ZYPREXA [Suspect]
     Indication: BIPOLAR DISORDER
  2. DEPAKOTE [Concomitant]

REACTIONS (5)
  - ASTHENIA [None]
  - CARDIAC DISORDER [None]
  - FALL [None]
  - GAIT DISTURBANCE [None]
  - HOSPITALISATION [None]
